FAERS Safety Report 4701912-1 (Version None)
Quarter: 2005Q2

REPORT INFORMATION
  Report Type: 
  Country: None (occurrence: None)
  Receive Date: 20050627
  Receipt Date: 20050616
  Transmission Date: 20051028
  Serious: Yes (Hospitalization, Other)
  Sender: FDA-Public Use
  Company Number: 2005075947

PATIENT
  Age: 70 Year
  Sex: Female
  Weight: 74.8435 kg

DRUGS (2)
  1. BEXTRA [Suspect]
     Indication: RHEUMATOID ARTHRITIS
     Dosage: 10 MG (10 MG, 1 IN 1 D), ORAL
     Route: 048
     Dates: start: 20011201
  2. ACIPHEX [Concomitant]

REACTIONS (13)
  - ABASIA [None]
  - BACK PAIN [None]
  - BURNING SENSATION [None]
  - COLD SWEAT [None]
  - CRYING [None]
  - DEPRESSION [None]
  - FEELING ABNORMAL [None]
  - FEELING COLD [None]
  - FEELING HOT AND COLD [None]
  - HIP ARTHROPLASTY [None]
  - INSOMNIA [None]
  - PAIN [None]
  - TREMOR [None]
